FAERS Safety Report 17388087 (Version 2)
Quarter: 2020Q1

REPORT INFORMATION
  Report Type: Spontaneous
  Country: DE (occurrence: DE)
  Receive Date: 20200206
  Receipt Date: 20200226
  Transmission Date: 20200409
  Serious: Yes (Hospitalization)
  Sender: FDA-Public Use
  Company Number: DE-ALLERGAN-2004312US

PATIENT
  Sex: Male

DRUGS (1)
  1. TRIPTORELIN PAMOATE - BP [Suspect]
     Active Substance: TRIPTORELIN PAMOATE
     Indication: PARAPHILIA
     Dosage: 11.25 MG ONCE MONTHLY
     Route: 030
     Dates: start: 20191120, end: 20191120

REACTIONS (3)
  - Hydronephrosis [Not Recovered/Not Resolved]
  - Ureterolithiasis [Not Recovered/Not Resolved]
  - Off label use [Unknown]

NARRATIVE: CASE EVENT DATE: 20200127
